FAERS Safety Report 18124028 (Version 2)
Quarter: 2020Q3

REPORT INFORMATION
  Report Type: Report from Study
  Country: PK (occurrence: PK)
  Receive Date: 20200807
  Receipt Date: 20200817
  Transmission Date: 20201103
  Serious: Yes (Death, Other)
  Sender: FDA-Public Use
  Company Number: NVSC2020PK213037

PATIENT
  Age: 82 Year
  Sex: Male

DRUGS (2)
  1. VOTRIENT [Suspect]
     Active Substance: PAZOPANIB HYDROCHLORIDE
     Indication: RENAL CANCER METASTATIC
     Dosage: 400 MG, QD (ONCE A DAY GIVEN IN ALTERNATIVE PATTERN)
     Route: 048
     Dates: start: 201912, end: 202006
  2. VOTRIENT [Suspect]
     Active Substance: PAZOPANIB HYDROCHLORIDE
     Dosage: 690 MG, QD (ONCE A DAY GIVEN IN ALTERNATIVE PATTERN)
     Route: 048
     Dates: start: 201912, end: 202006

REACTIONS (6)
  - Cerebrovascular accident [Unknown]
  - Death [Fatal]
  - Malignant neoplasm progression [Not Recovered/Not Resolved]
  - Hemiplegia [Recovered/Resolved]
  - Renal cancer metastatic [Not Recovered/Not Resolved]
  - Metastases to lymph nodes [Not Recovered/Not Resolved]

NARRATIVE: CASE EVENT DATE: 201912
